FAERS Safety Report 9893862 (Version 2)
Quarter: 2014Q1

REPORT INFORMATION
  Report Type: Spontaneous
  Country: JP (occurrence: JP)
  Receive Date: 20140213
  Receipt Date: 20140220
  Transmission Date: 20141002
  Serious: No
  Sender: FDA-Public Use
  Company Number: JP-ELI_LILLY_AND_COMPANY-JP201402002133

PATIENT
  Age: 82 Year
  Sex: Female

DRUGS (7)
  1. EVISTA [Suspect]
     Indication: OSTEOPOROSIS
     Dosage: UNK
     Route: 048
     Dates: start: 20110406, end: 20140212
  2. MYSLEE [Concomitant]
     Indication: INSOMNIA
     Dosage: UNK
     Route: 048
     Dates: start: 20110810
  3. TAIPROTON [Concomitant]
     Indication: GASTRITIS
     Dosage: UNK
     Route: 048
     Dates: start: 20121212
  4. DEXALTIN [Concomitant]
     Indication: STOMATITIS
     Dosage: UNK
     Route: 062
     Dates: start: 20111126
  5. CELECOX [Concomitant]
     Route: 048
  6. LYRICA [Concomitant]
     Route: 048
  7. OPALMON [Concomitant]
     Route: 048

REACTIONS (2)
  - Angina pectoris [Recovered/Resolved]
  - Pain [Recovered/Resolved]
